FAERS Safety Report 9931757 (Version 2)
Quarter: 2014Q2

REPORT INFORMATION
  Report Type: Spontaneous
  Country: FR (occurrence: FR)
  Receive Date: 20140228
  Receipt Date: 20140528
  Transmission Date: 20141212
  Serious: Yes (Death)
  Sender: FDA-Public Use
  Company Number: FR-SA-2014SA021924

PATIENT
  Age: 65 Year
  Sex: Female

DRUGS (5)
  1. KARDEGIC [Suspect]
     Indication: PRODUCT USED FOR UNKNOWN INDICATION
     Route: 048
     Dates: start: 20140128
  2. LOVENOX [Suspect]
     Indication: PRODUCT USED FOR UNKNOWN INDICATION
     Dosage: DOSE:7000 UNIT(S)
     Route: 058
     Dates: start: 20140130, end: 20140130
  3. HEPARIN SODIUM PANPHARMA [Suspect]
     Indication: PRODUCT USED FOR UNKNOWN INDICATION
     Route: 042
     Dates: start: 20140130, end: 20140130
  4. BRILIQUE [Suspect]
     Indication: PRODUCT USED FOR UNKNOWN INDICATION
     Route: 048
     Dates: start: 20140128, end: 20140128
  5. BRILIQUE [Suspect]
     Indication: PRODUCT USED FOR UNKNOWN INDICATION
     Route: 048

REACTIONS (7)
  - Intracranial pressure increased [Fatal]
  - Coma [Fatal]
  - Cerebral haematoma [Fatal]
  - Agitation [Fatal]
  - Vomiting [Fatal]
  - Headache [Fatal]
  - Bradycardia [Fatal]
